FAERS Safety Report 23046272 (Version 1)
Quarter: 2023Q4

REPORT INFORMATION
  Report Type: Report from Study
  Country: FR (occurrence: FR)
  Receive Date: 20231009
  Receipt Date: 20231009
  Transmission Date: 20240109
  Serious: Yes (Death)
  Sender: FDA-Public Use
  Company Number: FR-DSJP-DSE-2023-138970

PATIENT
  Sex: Female
  Weight: 60 kg

DRUGS (2)
  1. ENHERTU [Suspect]
     Active Substance: FAM-TRASTUZUMAB DERUXTECAN-NXKI
     Indication: HER2 negative breast cancer
     Dosage: 4.4 MG/KG, CYCLIC
     Route: 065
     Dates: start: 20230104
  2. ENHERTU [Suspect]
     Active Substance: FAM-TRASTUZUMAB DERUXTECAN-NXKI
     Indication: Breast cancer metastatic
     Dosage: 4.2 MG/KG, CYCLIC (CYCLE 10)
     Route: 065

REACTIONS (3)
  - Hepatotoxicity [Fatal]
  - Disease progression [Fatal]
  - Intentional product use issue [Recovered/Resolved]
